FAERS Safety Report 9306668 (Version 2)
Quarter: 2014Q1

REPORT INFORMATION
  Report Type: Report from Study
  Country: US (occurrence: US)
  Receive Date: 20130523
  Receipt Date: 20140207
  Transmission Date: 20141002
  Serious: Yes (Hospitalization, Other)
  Sender: FDA-Public Use
  Company Number: US-ALEXION-A201300855

PATIENT
  Sex: Female

DRUGS (2)
  1. SOLIRIS [Suspect]
     Indication: HAEMOLYTIC URAEMIC SYNDROME
     Dosage: UNK
     Route: 042
     Dates: start: 20130407, end: 20130407
  2. SOLIRIS [Suspect]
     Indication: OFF LABEL USE

REACTIONS (2)
  - Unevaluable event [Unknown]
  - Thrombotic thrombocytopenic purpura [Unknown]
